FAERS Safety Report 23339607 (Version 8)
Quarter: 2025Q1

REPORT INFORMATION
  Report Type: Spontaneous
  Country: DE (occurrence: DE)
  Receive Date: 20231226
  Receipt Date: 20250228
  Transmission Date: 20250409
  Serious: Yes (Hospitalization, Other)
  Sender: SANDOZ
  Company Number: DE-ROCHE-2288949

PATIENT
  Age: 31 Year
  Sex: Female
  Weight: 99 kg

DRUGS (84)
  1. AMITRIPTYLINE HYDROCHLORIDE [Suspect]
     Active Substance: AMITRIPTYLINE HYDROCHLORIDE
     Indication: Multiple sclerosis relapse
     Route: 042
  2. AMITRIPTYLINE HYDROCHLORIDE [Suspect]
     Active Substance: AMITRIPTYLINE HYDROCHLORIDE
     Indication: Depression
     Dosage: 25 MG, QD (NOCTE)
     Route: 048
  3. BACLOFEN [Suspect]
     Active Substance: BACLOFEN
     Indication: Ataxia
     Route: 048
  4. BACLOFEN [Suspect]
     Active Substance: BACLOFEN
     Route: 065
  5. BACLOFEN [Suspect]
     Active Substance: BACLOFEN
     Route: 065
  6. BACLOFEN [Suspect]
     Active Substance: BACLOFEN
     Route: 065
  7. BACLOFEN [Suspect]
     Active Substance: BACLOFEN
     Route: 065
  8. BACLOFEN [Suspect]
     Active Substance: BACLOFEN
     Route: 065
  9. CORTISONE [Suspect]
     Active Substance: CORTISONE
     Indication: Multiple sclerosis relapse
     Route: 042
  10. OCREVUS [Suspect]
     Active Substance: OCRELIZUMAB
     Indication: Secondary progressive multiple sclerosis
     Route: 042
  11. OCREVUS [Suspect]
     Active Substance: OCRELIZUMAB
     Route: 042
  12. OCREVUS [Suspect]
     Active Substance: OCRELIZUMAB
     Route: 042
     Dates: end: 20200331
  13. OCREVUS [Suspect]
     Active Substance: OCRELIZUMAB
     Route: 042
  14. OCREVUS [Suspect]
     Active Substance: OCRELIZUMAB
     Route: 042
  15. PREGABALIN [Suspect]
     Active Substance: PREGABALIN
     Route: 048
  16. PREGABALIN [Suspect]
     Active Substance: PREGABALIN
     Route: 048
  17. PREGABALIN [Suspect]
     Active Substance: PREGABALIN
     Route: 048
  18. PREGABALIN [Suspect]
     Active Substance: PREGABALIN
     Indication: Pain
     Dosage: 75 MG, QD
     Route: 048
  19. NABIXIMOLS [Suspect]
     Active Substance: NABIXIMOLS
     Indication: Muscle spasticity
     Route: 065
  20. NABIXIMOLS [Suspect]
     Active Substance: NABIXIMOLS
     Indication: Neuralgia
     Route: 065
     Dates: end: 202312
  21. AMANTADINE [Concomitant]
     Active Substance: AMANTADINE
     Indication: Fatigue
     Dosage: 100 MG, BID, 0.5 DAY (1-1-0)
     Route: 048
  22. AMLODIPINE [Concomitant]
     Active Substance: AMLODIPINE BESYLATE
     Indication: Hypertension
     Dosage: 5 MG, QD
     Route: 048
  23. AMLODIPINE [Concomitant]
     Active Substance: AMLODIPINE BESYLATE
     Dosage: 5 MG, QD
     Route: 065
  24. AMLODIPINE [Concomitant]
     Active Substance: AMLODIPINE BESYLATE
     Dosage: 5 MG, QD
     Route: 065
  25. AMLODIPINE [Concomitant]
     Active Substance: AMLODIPINE BESYLATE
     Dosage: 5.000MG QD
     Route: 065
  26. AMLODIPINE [Concomitant]
     Active Substance: AMLODIPINE BESYLATE
     Dosage: 5.000MG QD
     Route: 065
  27. AMLODIPINE [Concomitant]
     Active Substance: AMLODIPINE BESYLATE
     Dosage: 5.000MG QD
     Route: 065
  28. CANDESARTAN [Concomitant]
     Active Substance: CANDESARTAN
     Dosage: 1-0-0
     Route: 065
     Dates: start: 20190927
  29. CANDESARTAN [Concomitant]
     Active Substance: CANDESARTAN
     Dosage: 1-0-0
     Route: 065
     Dates: start: 20190927
  30. CANDESARTAN [Concomitant]
     Active Substance: CANDESARTAN
     Dosage: 1-0-0
     Route: 065
     Dates: start: 20190927
  31. CANDESARTAN [Concomitant]
     Active Substance: CANDESARTAN
     Indication: Hypertension
     Dosage: 1-0-0, 27-SEP-2019 00:00
     Route: 048
     Dates: start: 20190927
  32. CANDESARTAN [Concomitant]
     Active Substance: CANDESARTAN
     Dosage: 1-0-0, 27-SEP-2019 00:00
     Route: 065
  33. CANDESARTAN [Concomitant]
     Active Substance: CANDESARTAN
     Dosage: 1-0-0, 27-SEP-2019 00:00
     Route: 065
  34. POLYETHYLENE GLYCOLS [Concomitant]
     Active Substance: POLYETHYLENE GLYCOLS
     Indication: Product used for unknown indication
     Route: 065
  35. POLYETHYLENE GLYCOLS [Concomitant]
     Active Substance: POLYETHYLENE GLYCOLS
     Route: 065
  36. POLYETHYLENE GLYCOLS [Concomitant]
     Active Substance: POLYETHYLENE GLYCOLS
     Route: 065
  37. POLYETHYLENE GLYCOLS [Concomitant]
     Active Substance: POLYETHYLENE GLYCOLS
     Route: 065
  38. POLYETHYLENE GLYCOLS [Concomitant]
     Active Substance: POLYETHYLENE GLYCOLS
     Route: 065
  39. POLYETHYLENE GLYCOLS [Concomitant]
     Active Substance: POLYETHYLENE GLYCOLS
     Route: 065
  40. POLYETHYLENE GLYCOLS [Concomitant]
     Active Substance: POLYETHYLENE GLYCOLS
     Route: 065
  41. POLYETHYLENE GLYCOLS [Concomitant]
     Active Substance: POLYETHYLENE GLYCOLS
     Route: 065
  42. POLYETHYLENE GLYCOLS [Concomitant]
     Active Substance: POLYETHYLENE GLYCOLS
     Route: 065
  43. POLYETHYLENE GLYCOLS [Concomitant]
     Active Substance: POLYETHYLENE GLYCOLS
     Route: 065
  44. POLYETHYLENE GLYCOLS [Concomitant]
     Active Substance: POLYETHYLENE GLYCOLS
     Route: 065
  45. POLYETHYLENE GLYCOLS [Concomitant]
     Active Substance: POLYETHYLENE GLYCOLS
     Route: 065
  46. POLYETHYLENE GLYCOLS [Concomitant]
     Active Substance: POLYETHYLENE GLYCOLS
     Route: 065
  47. POLYETHYLENE GLYCOLS [Concomitant]
     Active Substance: POLYETHYLENE GLYCOLS
     Route: 065
  48. POLYETHYLENE GLYCOLS [Concomitant]
     Active Substance: POLYETHYLENE GLYCOLS
     Route: 065
  49. POLYETHYLENE GLYCOLS [Concomitant]
     Active Substance: POLYETHYLENE GLYCOLS
     Route: 065
  50. POLYETHYLENE GLYCOLS [Concomitant]
     Active Substance: POLYETHYLENE GLYCOLS
     Route: 065
  51. POLYETHYLENE GLYCOLS [Concomitant]
     Active Substance: POLYETHYLENE GLYCOLS
     Route: 065
  52. POLYETHYLENE GLYCOLS [Concomitant]
     Active Substance: POLYETHYLENE GLYCOLS
     Route: 065
  53. POLYETHYLENE GLYCOLS [Concomitant]
     Active Substance: POLYETHYLENE GLYCOLS
     Route: 065
  54. POLYETHYLENE GLYCOLS [Concomitant]
     Active Substance: POLYETHYLENE GLYCOLS
     Route: 065
  55. POLYETHYLENE GLYCOLS [Concomitant]
     Active Substance: POLYETHYLENE GLYCOLS
     Route: 065
  56. Novalgin [Concomitant]
     Indication: Pain
     Route: 048
     Dates: start: 20200331
  57. PANTOZOL [Concomitant]
     Active Substance: PANTOPRAZOLE SODIUM
     Indication: Gastrointestinal disorder prophylaxis
     Dosage: 40 MG, QD
     Route: 048
  58. PREGABALIN [Concomitant]
     Active Substance: PREGABALIN
     Indication: Pain
     Route: 048
     Dates: start: 20200331
  59. SALBUHEXAL [Concomitant]
     Active Substance: ALBUTEROL
     Indication: Product used for unknown indication
     Route: 065
  60. SALBUHEXAL [Concomitant]
     Active Substance: ALBUTEROL
     Route: 065
  61. SALBUHEXAL [Concomitant]
     Active Substance: ALBUTEROL
     Route: 065
  62. SALBUHEXAL [Concomitant]
     Active Substance: ALBUTEROL
     Route: 065
  63. SALBUHEXAL [Concomitant]
     Active Substance: ALBUTEROL
     Route: 065
  64. SALBUHEXAL [Concomitant]
     Active Substance: ALBUTEROL
     Route: 065
  65. SYMBICORT [Concomitant]
     Active Substance: BUDESONIDE\FORMOTEROL FUMARATE DIHYDRATE
     Route: 065
  66. SYMBICORT [Concomitant]
     Active Substance: BUDESONIDE\FORMOTEROL FUMARATE DIHYDRATE
     Route: 065
  67. SYMBICORT [Concomitant]
     Active Substance: BUDESONIDE\FORMOTEROL FUMARATE DIHYDRATE
     Route: 065
  68. SYMBICORT [Concomitant]
     Active Substance: BUDESONIDE\FORMOTEROL FUMARATE DIHYDRATE
     Route: 065
  69. SYMBICORT [Concomitant]
     Active Substance: BUDESONIDE\FORMOTEROL FUMARATE DIHYDRATE
     Route: 065
  70. SYMBICORT [Concomitant]
     Active Substance: BUDESONIDE\FORMOTEROL FUMARATE DIHYDRATE
     Route: 065
  71. SYMBICORT [Concomitant]
     Active Substance: BUDESONIDE\FORMOTEROL FUMARATE DIHYDRATE
     Route: 065
  72. SYMBICORT [Concomitant]
     Active Substance: BUDESONIDE\FORMOTEROL FUMARATE DIHYDRATE
     Route: 065
  73. SYMBICORT [Concomitant]
     Active Substance: BUDESONIDE\FORMOTEROL FUMARATE DIHYDRATE
     Route: 065
  74. SYMBICORT [Concomitant]
     Active Substance: BUDESONIDE\FORMOTEROL FUMARATE DIHYDRATE
     Route: 065
  75. SYMBICORT [Concomitant]
     Active Substance: BUDESONIDE\FORMOTEROL FUMARATE DIHYDRATE
     Route: 065
  76. SYMBICORT [Concomitant]
     Active Substance: BUDESONIDE\FORMOTEROL FUMARATE DIHYDRATE
     Route: 065
  77. SYMBICORT [Concomitant]
     Active Substance: BUDESONIDE\FORMOTEROL FUMARATE DIHYDRATE
     Route: 065
  78. SYMBICORT [Concomitant]
     Active Substance: BUDESONIDE\FORMOTEROL FUMARATE DIHYDRATE
     Route: 065
  79. SYMBICORT [Concomitant]
     Active Substance: BUDESONIDE\FORMOTEROL FUMARATE DIHYDRATE
     Route: 065
  80. SYMBICORT [Concomitant]
     Active Substance: BUDESONIDE\FORMOTEROL FUMARATE DIHYDRATE
     Route: 065
  81. SYMBICORT [Concomitant]
     Active Substance: BUDESONIDE\FORMOTEROL FUMARATE DIHYDRATE
     Route: 065
  82. SYMBICORT [Concomitant]
     Active Substance: BUDESONIDE\FORMOTEROL FUMARATE DIHYDRATE
     Route: 065
  83. SYMBICORT [Concomitant]
     Active Substance: BUDESONIDE\FORMOTEROL FUMARATE DIHYDRATE
     Route: 065
  84. SYMBICORT [Concomitant]
     Active Substance: BUDESONIDE\FORMOTEROL FUMARATE DIHYDRATE
     Indication: Product used for unknown indication
     Route: 065

REACTIONS (25)
  - Multiple sclerosis relapse [Recovered/Resolved]
  - Depression [Recovering/Resolving]
  - Muscle spasticity [Not Recovered/Not Resolved]
  - Oropharyngeal pain [Recovered/Resolved]
  - Blood immunoglobulin G decreased [Not Recovered/Not Resolved]
  - Breast mass [Recovered/Resolved]
  - Alopecia [Recovered/Resolved]
  - Neuralgia [Not Recovered/Not Resolved]
  - Bronchitis [Recovered/Resolved]
  - Sleep disorder [Recovered/Resolved]
  - Stomatitis [Recovered/Resolved]
  - Asthma [Unknown]
  - Fall [Unknown]
  - Weight increased [Recovering/Resolving]
  - Gait disturbance [Recovered/Resolved]
  - Fatigue [Recovered/Resolved]
  - Gait disturbance [Not Recovered/Not Resolved]
  - Pain [Recovered/Resolved]
  - Tension [Recovering/Resolving]
  - Muscle spasticity [Not Recovered/Not Resolved]
  - Agitation [Recovering/Resolving]
  - Heart rate increased [Recovered/Resolved]
  - Cough [Not Recovered/Not Resolved]
  - Intentional product use issue [Unknown]
  - Off label use [Unknown]

NARRATIVE: CASE EVENT DATE: 20190115
